FAERS Safety Report 10223144 (Version 1)
Quarter: 2014Q2

REPORT INFORMATION
  Report Type: Spontaneous
  Country: US (occurrence: US)
  Receive Date: 20140608
  Receipt Date: 20140608
  Transmission Date: 20141212
  Serious: No
  Sender: FDA-Public Use
  Company Number: US-009507513-1405USA001463

PATIENT
  Age: 4 Year
  Sex: 0

DRUGS (3)
  1. CLARITIN CHEWABLE TABLETS [Suspect]
     Indication: HYPERSENSITIVITY
     Dosage: UNK, UNKNOWN
     Route: 048
     Dates: start: 20140420
  2. CLARITIN CHEWABLE TABLETS [Suspect]
     Indication: SNEEZING
  3. CLARITIN CHEWABLE TABLETS [Suspect]
     Indication: RHINORRHOEA

REACTIONS (1)
  - Drug effect incomplete [Unknown]
